FAERS Safety Report 8531747-3 (Version None)
Quarter: 2012Q3

REPORT INFORMATION
  Report Type: 
  Country: None (occurrence: None)
  Receive Date: 20120723
  Receipt Date: 20120709
  Transmission Date: 20120928
  Serious: No
  Sender: FDA-Public Use
  Company Number: US-ASTRAZENECA-2012SE47222

PATIENT
  Age: 58 Year
  Sex: Female

DRUGS (1)
  1. NEXIUM [Suspect]
     Route: 048

REACTIONS (4)
  - SLEEP DISORDER DUE TO A GENERAL MEDICAL CONDITION [None]
  - CHOKING [None]
  - DRUG DOSE OMISSION [None]
  - PHARYNGEAL OEDEMA [None]
